FAERS Safety Report 6150064-2 (Version None)
Quarter: 2009Q2

REPORT INFORMATION
  Report Type: 
  Country: None (occurrence: None)
  Receive Date: 20090407
  Receipt Date: 20090407
  Transmission Date: 20091009
  Serious: Yes (Other)
  Sender: FDA-Public Use
  Company Number: None

PATIENT
  Age: 33 Year
  Sex: Female
  Weight: 47.1741 kg

DRUGS (1)
  1. K-PHOS ORIGINAL TABLET BEA BEACH PRODUCTS [Suspect]
     Indication: BONE DENSITY INCREASED
     Dosage: ONCE DAILY PO
     Route: 048
     Dates: start: 20090401, end: 20090406

REACTIONS (2)
  - PRURITUS [None]
  - RASH [None]
